FAERS Safety Report 23573053 (Version 2)
Quarter: 2024Q2

REPORT INFORMATION
  Report Type: Spontaneous
  Country: DE (occurrence: DE)
  Receive Date: 20240227
  Receipt Date: 20240610
  Transmission Date: 20240716
  Serious: Yes (Hospitalization, Other)
  Sender: FDA-Public Use
  Company Number: None

PATIENT
  Age: 76 Year
  Sex: Male
  Weight: 73 kg

DRUGS (46)
  1. LENALIDOMIDE [Suspect]
     Active Substance: LENALIDOMIDE
     Indication: Plasma cell myeloma
     Dosage: 20 MG, PER DAY ON CYCLE DAYS 1-21 OF A 28 DAYS LONG CYCLE
     Route: 048
     Dates: start: 20230330, end: 202305
  2. LENALIDOMIDE [Suspect]
     Active Substance: LENALIDOMIDE
     Dosage: 15 MG PER DAY ON CYCLE DAYS 1-21 OF A 28 DAYS LONG CYCLE
     Route: 048
     Dates: start: 20230717, end: 20240116
  3. LENALIDOMIDE [Suspect]
     Active Substance: LENALIDOMIDE
     Dosage: 15 MG PER DAY ON CYCLE DAYS 1-21 OF A 28 DAYS LONG CYCLE
     Route: 048
     Dates: start: 202305, end: 20230509
  4. LENALIDOMIDE [Suspect]
     Active Substance: LENALIDOMIDE
     Dosage: 10 MG PER DAY ON CYCLE DAYS 1-21 OF A 28 DAYS LONG CYCLE
     Route: 048
     Dates: start: 20240507
  5. LENALIDOMIDE [Suspect]
     Active Substance: LENALIDOMIDE
     Dosage: PER DAY ON CYCLE DAYS 1-21?15 MG PER DAY ON CYCLE DAYS 1-21 OF A 28 DAYS LONG CYCLE
     Route: 048
     Dates: end: 20240116
  6. LENALIDOMIDE [Suspect]
     Active Substance: LENALIDOMIDE
     Dosage: 10 MG PER DAY ON CYCLE DAYS 1-21 OF A 28 DAYS LONG CYCLE??17-JAN-2024
     Route: 048
     Dates: start: 20240117, end: 20240403
  7. TORSEMIDE [Suspect]
     Active Substance: TORSEMIDE
     Indication: Product used for unknown indication
  8. TORSEMIDE [Suspect]
     Active Substance: TORSEMIDE
  9. DARATUMUMAB [Suspect]
     Active Substance: DARATUMUMAB
     Indication: Plasma cell myeloma
     Dosage: 1800 MG PER DAY ON DAY 1 OF A 28 DAY LONG CYCLE
     Route: 058
     Dates: start: 20230330
  10. DARATUMUMAB [Suspect]
     Active Substance: DARATUMUMAB
     Dosage: 1800 MG PER DAY ON DAY 1 OF A 28 DAY LONG CYCLE
     Dates: start: 20231025
  11. DARATUMUMAB [Suspect]
     Active Substance: DARATUMUMAB
     Dosage: 1822 MG PER DAY ON DAY 1 OF A 28 DAY LONG CYCLE
     Route: 058
     Dates: start: 20230523
  12. DARATUMUMAB [Suspect]
     Active Substance: DARATUMUMAB
     Dosage: 1800 PER DAY ON DAY 1 OF A 21 DAY LONG CYCLE
  13. DEXAMETHASONE [Suspect]
     Active Substance: DEXAMETHASONE
     Indication: Plasma cell myeloma
     Dosage: 20 MG, PER DAY ON CYCLE DAYS 1, 2, 8, 9, 15, 16, 22, 23 OF A 28 DAYS LONG CYCLE
     Route: 048
     Dates: start: 20230330, end: 20230726
  14. DEXAMETHASONE [Suspect]
     Active Substance: DEXAMETHASONE
     Dosage: 20 MG PER DAY ON CYCLE DAYS 1, 2, 8, 15, 22 OF A 28 DAYS LONG CYCLE
     Route: 048
     Dates: start: 20231025
  15. DEXAMETHASONE [Suspect]
     Active Substance: DEXAMETHASONE
     Dosage: 20 MG PER DAY ON CYCLE DAYS 1, 2, 8, 15, 16, 22 OF A 28 DAYS LONG CYCLE
     Route: 048
     Dates: end: 20231018
  16. DIMETHINDENE [Concomitant]
     Active Substance: DIMETHINDENE
     Indication: Product used for unknown indication
     Dosage: 1 MG
  17. DIMETHINDENE [Concomitant]
     Active Substance: DIMETHINDENE
     Dosage: 1MG
  18. ELIQUIS [Concomitant]
     Active Substance: APIXABAN
     Indication: Product used for unknown indication
     Dosage: 5 MG
  19. ELIQUIS [Concomitant]
     Active Substance: APIXABAN
  20. MONTELUKAST [Concomitant]
     Active Substance: MONTELUKAST SODIUM
     Indication: Product used for unknown indication
     Dosage: 10 MG
  21. MONTELUKAST [Concomitant]
     Active Substance: MONTELUKAST SODIUM
     Dosage: 10 MG
  22. DIGOXIN [Concomitant]
     Active Substance: DIGOXIN
     Indication: Product used for unknown indication
     Dosage: 0.25 MG, 1X PER DAY
     Route: 048
     Dates: start: 20230622
  23. COTRIM [Concomitant]
     Active Substance: SULFAMETHOXAZOLE\TRIMETHOPRIM
     Indication: Product used for unknown indication
     Dosage: 960 MG
  24. COTRIM [Concomitant]
     Active Substance: SULFAMETHOXAZOLE\TRIMETHOPRIM
     Dosage: 960 MG
  25. METOPROLOL [Concomitant]
     Active Substance: METOPROLOL
     Indication: Product used for unknown indication
     Dosage: 50 MG, 2X PER DAY 1.5-0-1.5
     Route: 048
     Dates: start: 20230622
  26. METOPROLOL [Concomitant]
     Active Substance: METOPROLOL
     Dosage: 50 MG, 2X PER DAY 1.5-0-1.5
     Route: 048
     Dates: start: 20220622
  27. PANTOPRAZOLE [Concomitant]
     Active Substance: PANTOPRAZOLE
     Indication: Product used for unknown indication
     Dosage: 40 MG, 1X PER DAY 1-0-0
     Route: 048
     Dates: start: 20230622
  28. Clexane 40mg 0,4ml [Concomitant]
     Indication: Product used for unknown indication
     Dosage: 1 DOSAGE FORM (40/0.4 MG/ML), 2X PER DAY 1-0-1
     Route: 058
     Dates: start: 20230623
  29. ACETAMINOPHEN [Concomitant]
     Active Substance: ACETAMINOPHEN
     Indication: Product used for unknown indication
     Dosage: 500 MG
  30. ACETAMINOPHEN [Concomitant]
     Active Substance: ACETAMINOPHEN
     Dosage: 500MG
  31. ACYCLOVIR [Concomitant]
     Active Substance: ACYCLOVIR
     Indication: Product used for unknown indication
     Dosage: 400 MG, 2X PER DAY  1-0-1
     Route: 048
     Dates: start: 20230622
  32. LERCANIDIPINE [Concomitant]
     Active Substance: LERCANIDIPINE
     Indication: Product used for unknown indication
     Dosage: 10 MG
  33. LERCANIDIPINE [Concomitant]
     Active Substance: LERCANIDIPINE
  34. LERCANIDIPINE [Concomitant]
     Active Substance: LERCANIDIPINE
     Dosage: 10 MG
  35. CALCIUM CARBONATE\CHOLECALCIFEROL [Concomitant]
     Active Substance: CALCIUM CARBONATE\CHOLECALCIFEROL
     Indication: Product used for unknown indication
  36. CALCIUM CARBONATE\CHOLECALCIFEROL [Concomitant]
     Active Substance: CALCIUM CARBONATE\CHOLECALCIFEROL
  37. METOPROLOL [Concomitant]
     Active Substance: METOPROLOL
     Indication: Product used for unknown indication
  38. CANDESARTAN [Concomitant]
     Active Substance: CANDESARTAN
     Indication: Product used for unknown indication
     Dosage: 16 MG, 1X PER DAY 1-0-0
     Dates: start: 20230622
  39. ACYCLOVIR [Concomitant]
     Active Substance: ACYCLOVIR
     Indication: Product used for unknown indication
  40. PANTOPRAZOLE [Concomitant]
     Active Substance: PANTOPRAZOLE
     Indication: Product used for unknown indication
     Route: 065
  41. Fresubin energy DRINK starwberry [Concomitant]
     Indication: Product used for unknown indication
     Dosage: 1 DOSAGE FORM, 2X PER DAY 1-1-0
     Route: 048
     Dates: start: 20230622
  42. Calcium-Sandoz D Osteo [Concomitant]
     Indication: Product used for unknown indication
     Dosage: 500 MG, 2X PER DAY 1-0-1
     Route: 048
     Dates: start: 20230622
  43. CANDESARTAN [Concomitant]
     Active Substance: CANDESARTAN
     Indication: Product used for unknown indication
     Dosage: 16 MG, 1X PER DAY 1-0-0
     Dates: start: 20230622
  44. MOVICOL JUNIOR NEUTRAL [Concomitant]
     Indication: Product used for unknown indication
     Dosage: 1 DOSAGE FORM, 2X PER DAY 1-0-1?SACHET
     Route: 048
     Dates: start: 20230623
  45. ALDACTONE [Concomitant]
     Active Substance: SPIRONOLACTONE
     Indication: Product used for unknown indication
     Dosage: 25 MG, 1X PER DAY 1-0-0
     Route: 048
     Dates: start: 20230623
  46. TORASEMIDE HEXAL [Concomitant]
     Indication: Product used for unknown indication
     Dosage: 10 MG, 2X PER DAY 1-1-0
     Route: 048
     Dates: start: 20230627

REACTIONS (15)
  - Febrile neutropenia [Unknown]
  - Neutropenia [Recovering/Resolving]
  - Haemoglobin decreased [Recovered/Resolved]
  - White blood cell count decreased [Recovering/Resolving]
  - Renal oncocytoma [Recovered/Resolved]
  - Cardiac failure acute [Recovered/Resolved]
  - Calculus bladder [Recovered/Resolved]
  - Fatigue [Recovered/Resolved]
  - Malaise [Recovered/Resolved]
  - Leukopenia [Unknown]
  - Pneumonia [Recovered/Resolved]
  - Condition aggravated [Recovered/Resolved]
  - Vertigo [Recovering/Resolving]
  - Dyspnoea [Recovered/Resolved]
  - Rash [Recovering/Resolving]

NARRATIVE: CASE EVENT DATE: 20230501
